FAERS Safety Report 6375789-5 (Version None)
Quarter: 2009Q3

REPORT INFORMATION
  Report Type: 
  Country: None (occurrence: None)
  Receive Date: 20090921
  Receipt Date: 20090908
  Transmission Date: 20100115
  Serious: No
  Sender: FDA-Public Use
  Company Number: 2009010269

PATIENT
  Age: 49 Year
  Sex: Male

DRUGS (14)
  1. FENTORA [Suspect]
     Indication: PAIN
     Dosage: SEE IMAGE
     Route: 002
     Dates: start: 20081101, end: 20090714
  2. FENTORA [Suspect]
     Indication: PAIN
     Dosage: SEE IMAGE
     Route: 002
     Dates: start: 20090715, end: 20090814
  3. FENTORA [Suspect]
     Indication: PAIN
     Dosage: SEE IMAGE
     Route: 002
     Dates: start: 20090815
  4. FENTORA [Suspect]
  5. FENTANYL [Concomitant]
  6. RITALIN [Concomitant]
  7. DIAZEPAM [Concomitant]
  8. VIAGRA [Concomitant]
  9. LISINOPRIL [Concomitant]
  10. CRESTOR [Concomitant]
  11. PULMICORT [Concomitant]
  12. PROVENTIL [Concomitant]
  13. NASONEX [Concomitant]
  14. ZYRTEC [Concomitant]

REACTIONS (5)
  - BURNING SENSATION [None]
  - DYSGEUSIA [None]
  - INCORRECT ROUTE OF DRUG ADMINISTRATION [None]
  - MEDICATION ERROR [None]
  - PRODUCT QUALITY ISSUE [None]
